FAERS Safety Report 4910398-3 (Version None)
Quarter: 2006Q1

REPORT INFORMATION
  Report Type: 
  Country: None (occurrence: None)
  Receive Date: 20060209
  Receipt Date: 20060127
  Transmission Date: 20060701
  Serious: Yes (Other)
  Sender: FDA-Public Use
  Company Number: 2005172433

PATIENT
  Sex: Female
  Weight: 113.3993 kg

DRUGS (10)
  1. BEXTRA [Suspect]
     Indication: ILL-DEFINED DISORDER
     Dosage: 10 MG (10 MG, 1 IN 1 D), ORAL
     Route: 048
     Dates: start: 20020310
  2. XANAX [Suspect]
     Indication: PANIC ATTACK
  3. NEURONTIN [Suspect]
     Indication: CONVULSION
     Dates: start: 20021101, end: 20030101
  4. LAMICTAL [Suspect]
     Indication: CONVULSION
     Dates: start: 20030101, end: 20030101
  5. KEPPRA [Suspect]
     Indication: CONVULSION
     Dates: start: 20030101
  6. NORTRIPTYLINE HCL [Concomitant]
  7. CITRACAL + D (CALCIUM CITRATE, ERGOCALCIFEROL) [Concomitant]
  8. ESGIC (BUTALBITAL, CAFFEINE, PARACETAMOL) [Concomitant]
  9. ALBUTEROL [Concomitant]
  10. VITAMIN B12 [Concomitant]

REACTIONS (10)
  - BACK PAIN [None]
  - COMA [None]
  - COMPLEX PARTIAL SEIZURES [None]
  - DRUG INEFFECTIVE [None]
  - GRAND MAL CONVULSION [None]
  - PANIC ATTACK [None]
  - REFUSAL OF TREATMENT BY RELATIVE [None]
  - ROAD TRAFFIC ACCIDENT [None]
  - STEVENS-JOHNSON SYNDROME [None]
  - WEIGHT DECREASED [None]
